FAERS Safety Report 19984458 (Version 2)
Quarter: 2021Q4

REPORT INFORMATION
  Report Type: Spontaneous
  Country: US (occurrence: US)
  Receive Date: 20211021
  Receipt Date: 20211028
  Transmission Date: 20220303
  Serious: Yes (Hospitalization)
  Sender: FDA-Public Use
  Company Number: US-TEVA-2021-US-1966673

PATIENT
  Age: 42 Year
  Sex: Male

DRUGS (3)
  1. OLANZAPINE [Suspect]
     Active Substance: OLANZAPINE
     Indication: Schizophrenia
     Dosage: 20 MILLIGRAM DAILY;
     Route: 065
  2. HALOPERIDOL [Suspect]
     Active Substance: HALOPERIDOL
     Indication: Schizophrenia
     Dosage: 10 MILLIGRAM DAILY;
     Route: 065
  3. HALOPERIDOL DECANOATE [Concomitant]
     Active Substance: HALOPERIDOL DECANOATE
     Indication: Schizophrenia
     Dosage: 3.5714 MILLIGRAM DAILY; AFTER OLANZAPINE WAS DISCONTINUED, DOSE OF HALOPERIDOL DECANOATE WAS INCREAS
     Route: 065

REACTIONS (8)
  - Pancreatitis necrotising [Not Recovered/Not Resolved]
  - Vomiting [Unknown]
  - Pancreatitis acute [Not Recovered/Not Resolved]
  - Lactic acidosis [Unknown]
  - Peptostreptococcus infection [Unknown]
  - Acute respiratory failure [Unknown]
  - Type 1 diabetes mellitus [Unknown]
  - Hyperglycaemia [Unknown]
